FAERS Safety Report 17828513 (Version 3)
Quarter: 2021Q3

REPORT INFORMATION
  Report Type: Spontaneous
  Country: US (occurrence: US)
  Receive Date: 20200527
  Receipt Date: 20210729
  Transmission Date: 20211014
  Serious: No
  Sender: FDA-Public Use
  Company Number: US-PFIZER INC-2019228102

PATIENT
  Age: 37 Year
  Sex: Female
  Weight: 100 kg

DRUGS (3)
  1. LYRICA [Suspect]
     Active Substance: PREGABALIN
     Indication: NEURALGIA
  2. LYRICA [Suspect]
     Active Substance: PREGABALIN
     Indication: BACK PAIN
  3. LYRICA [Suspect]
     Active Substance: PREGABALIN
     Indication: FIBROMYALGIA
     Dosage: 300 MG, 2X/DAY (FOR 90 DAYS/TAKE 1 CAP TWO TIMES A DAY FOR 90 DAYS)
     Route: 048
     Dates: start: 2008

REACTIONS (3)
  - Feeling abnormal [Unknown]
  - Expired product administered [Unknown]
  - Product prescribing error [Unknown]

NARRATIVE: CASE EVENT DATE: 20190307
